FAERS Safety Report 9043991 (Version 1)
Quarter: 2013Q1

REPORT INFORMATION
  Report Type: Report from Study
  Country: US (occurrence: US)
  Receive Date: 20130130
  Receipt Date: 20130130
  Transmission Date: 20140127
  Serious: No
  Sender: FDA-Public Use
  Company Number: US-ABBOTT-12P-163-0945554-00

PATIENT
  Age: 53 Year
  Sex: Male

DRUGS (6)
  1. HUMIRA 40 MG/0.8 ML PEN [Suspect]
     Indication: PSORIASIS
     Route: 058
     Dates: start: 20120521
  2. DEPAKOTE [Concomitant]
     Indication: PROPHYLAXIS
  3. DEPAKOTE [Concomitant]
     Indication: CLUSTER HEADACHE
  4. VERAPAMIL [Concomitant]
     Indication: PROPHYLAXIS
  5. VERAPAMIL [Concomitant]
     Indication: CLUSTER HEADACHE
  6. IMITREX [Concomitant]
     Indication: CLUSTER HEADACHE

REACTIONS (1)
  - Chest discomfort [Not Recovered/Not Resolved]
